FAERS Safety Report 16615810 (Version 1)
Quarter: 2019Q3

REPORT INFORMATION
  Report Type: Spontaneous
  Country: US (occurrence: US)
  Receive Date: 20190723
  Receipt Date: 20190723
  Transmission Date: 20191004
  Serious: Yes (Life-Threatening, Hospitalization, Disabling, Other)
  Sender: FDA-Public Use
  Company Number: None

PATIENT
  Age: 39 Year
  Sex: Male
  Weight: 67.5 kg

DRUGS (4)
  1. FLOMOXCILLINE [Concomitant]
  2. VANCOMYCIN (VANCOMYCIN) [Suspect]
     Active Substance: VANCOMYCIN
     Indication: OSTEOMYELITIS
     Route: 042
  3. AFO [Concomitant]
  4. DICLOPA [Concomitant]

REACTIONS (1)
  - Toe amputation [None]

NARRATIVE: CASE EVENT DATE: 20100101
